FAERS Safety Report 8145377-9 (Version None)
Quarter: 2012Q1

REPORT INFORMATION
  Report Type: 
  Country: None (occurrence: None)
  Receive Date: 20120217
  Receipt Date: 20120118
  Transmission Date: 20120608
  Serious: Yes (Life-Threatening)
  Sender: FDA-Public Use
  Company Number: CA-JNJFOC-20120203211

PATIENT
  Sex: Male
  Weight: 80.6 kg

DRUGS (7)
  1. SOLU-CORTEF [Concomitant]
     Indication: PREMEDICATION
     Route: 042
  2. REMICADE [Suspect]
     Indication: CROHN'S DISEASE
     Dosage: ON INFLIXIMAB FOR 2 YEARS IN THE PAST
     Route: 042
  3. IMURAN [Concomitant]
  4. REMICADE [Suspect]
     Dosage: STARTED ON THIS DATE AT 14:47, INCREASED TO 80ML/HR AT 15:02
     Route: 042
     Dates: start: 20120118
  5. REMICADE [Suspect]
     Route: 042
     Dates: start: 20111125
  6. FERROMAX [Concomitant]
  7. DESLORATADINE [Concomitant]
     Indication: PREMEDICATION

REACTIONS (4)
  - DYSPNOEA [None]
  - INFUSION RELATED REACTION [None]
  - RESTLESSNESS [None]
  - BLOOD PRESSURE DECREASED [None]
